FAERS Safety Report 4974512-6 (Version None)
Quarter: 2006Q1

REPORT INFORMATION
  Report Type: 
  Country: None (occurrence: None)
  Receive Date: 20060216
  Receipt Date: 20060119
  Transmission Date: 20060701
  Serious: No
  Sender: FDA-Public Use
  Company Number: TPA2006A00111

PATIENT
  Age: 73 Year
  Sex: Female
  Weight: 54.8852 kg

DRUGS (5)
  1. ROZEREM [Suspect]
     Indication: INSOMNIA
     Dosage: 12 MG, QHS, PER ORAL
     Route: 048
     Dates: start: 20060117
  2. FOSAMAX [Concomitant]
  3. ZOLOFT [Concomitant]
  4. DIAZEPAM [Concomitant]
  5. ZOLPIDEM TARTRATE [Concomitant]

REACTIONS (2)
  - INITIAL INSOMNIA [None]
  - INTENTIONAL OVERDOSE [None]
